FAERS Safety Report 17005444 (Version 1)
Quarter: 2019Q4

REPORT INFORMATION
  Report Type: Spontaneous
  Country: US (occurrence: US)
  Receive Date: 20191107
  Receipt Date: 20191107
  Transmission Date: 20200122
  Serious: No
  Sender: FDA-Public Use
  Company Number: US-TEVA-2019-US-1132461

PATIENT
  Sex: Female

DRUGS (1)
  1. OMEGA-3-ACID ETHYL ESTERS CAPSULES CAPSULE [Suspect]
     Active Substance: OMEGA-3-ACID ETHYL ESTERS
     Indication: PRODUCT USED FOR UNKNOWN INDICATION
     Route: 065

REACTIONS (2)
  - Eructation [Unknown]
  - Nausea [Unknown]
